FAERS Safety Report 11745833 (Version 2)
Quarter: 2020Q3

REPORT INFORMATION
  Report Type: Report from Study
  Country: US (occurrence: US)
  Receive Date: 20151117
  Receipt Date: 20151215
  Transmission Date: 20201104
  Serious: Yes (Hospitalization)
  Sender: FDA-Public Use
  Company Number: US-JNJFOC-20150808400

PATIENT
  Age: 68 Year
  Sex: Male
  Weight: 90.4 kg

DRUGS (2)
  1. DARATUMUMAB [Suspect]
     Active Substance: DARATUMUMAB
     Indication: PLASMA CELL MYELOMA
     Dosage: FREQUENCY: DAY 1, CYCLE 1 DAY 15 ON 25?AUG?2015
     Route: 042
     Dates: start: 20150811
  2. DARATUMUMAB [Suspect]
     Active Substance: DARATUMUMAB
     Indication: PLASMA CELL MYELOMA
     Dosage: CYCLE 1 DAY 15
     Route: 042
     Dates: start: 20150825

REACTIONS (4)
  - Lethargy [Recovered/Resolved]
  - Hypercalcaemia [Recovered/Resolved]
  - Acute myocardial infarction [Not Recovered/Not Resolved]
  - Renal failure [Recovered/Resolved]

NARRATIVE: CASE EVENT DATE: 201508
